FAERS Safety Report 10509169 (Version 1)
Quarter: 2014Q3

REPORT INFORMATION
  Report Type: Spontaneous
  Country: US (occurrence: None)
  Receive Date: 20140915
  Receipt Date: 20140915
  Transmission Date: 20150326
  Serious: Yes (Other)
  Sender: FDA-Public Use
  Company Number: 2014-US-003295

PATIENT
  Age: 50 Year
  Sex: Female
  Weight: 52.2 kg

DRUGS (2)
  1. LEXAPRO(ESCITALOPRAM OXALATE) [Concomitant]
  2. XYREM [Suspect]
     Active Substance: SODIUM OXYBATE
     Indication: NARCOLEPSY
     Route: 048
     Dates: start: 201307, end: 201308

REACTIONS (2)
  - Weight decreased [None]
  - Drug ineffective [None]

NARRATIVE: CASE EVENT DATE: 201402
